FAERS Safety Report 11124320 (Version 1)
Quarter: 2015Q2

REPORT INFORMATION
  Report Type: Spontaneous
  Country: IE (occurrence: IE)
  Receive Date: 20150520
  Receipt Date: 20150520
  Transmission Date: 20150821
  Serious: Yes (Other)
  Sender: FDA-Public Use
  Company Number: IE-ROCHE-1579958

PATIENT
  Sex: Female

DRUGS (1)
  1. RITUXIMAB [Suspect]
     Active Substance: RITUXIMAB
     Indication: ENCEPHALITIS
     Route: 065

REACTIONS (5)
  - Visual field defect [Unknown]
  - Brain injury [Unknown]
  - Epilepsy [Unknown]
  - Muscle twitching [Unknown]
  - Herpes virus infection [Unknown]
